FAERS Safety Report 12506899 (Version 3)
Quarter: 2016Q3

REPORT INFORMATION
  Report Type: Spontaneous
  Country: CN (occurrence: CN)
  Receive Date: 20160629
  Receipt Date: 20160712
  Transmission Date: 20161109
  Serious: Yes (Hospitalization)
  Sender: FDA-Public Use
  Company Number: CN-ASTRAZENECA-2016SE59676

PATIENT
  Age: 83 Year
  Sex: Male

DRUGS (2)
  1. CASODEX [Suspect]
     Active Substance: BICALUTAMIDE
     Route: 048
     Dates: start: 20160520
  2. ZOLADEX [Suspect]
     Active Substance: GOSERELIN ACETATE
     Indication: PROSTATE CANCER
     Route: 058
     Dates: start: 20160527

REACTIONS (6)
  - Nocturia [Not Recovered/Not Resolved]
  - Pain [Recovering/Resolving]
  - Dysuria [Not Recovered/Not Resolved]
  - Faeces hard [Unknown]
  - Oliguria [Not Recovered/Not Resolved]
  - Constipation [Not Recovered/Not Resolved]

NARRATIVE: CASE EVENT DATE: 20160528
